FAERS Safety Report 8842839 (Version 4)
Quarter: 2013Q4

REPORT INFORMATION
  Report Type: Report from Study
  Country: US (occurrence: US)
  Receive Date: 20121016
  Receipt Date: 20131115
  Transmission Date: 20140711
  Serious: Yes (Hospitalization)
  Sender: FDA-Public Use
  Company Number: US-ACTELION-A-US2012-72567

PATIENT
  Age: 85 Year
  Sex: Female

DRUGS (19)
  1. TRACLEER [Suspect]
     Indication: PULMONARY HYPERTENSION
     Dosage: 125 MG, UNK
     Route: 048
     Dates: start: 201109
  2. TRACLEER [Suspect]
     Dosage: UNK MG, BID
     Route: 048
     Dates: start: 200104, end: 2011
  3. COUMADIN [Concomitant]
  4. ASPIRIN [Concomitant]
     Dosage: 325 MG, UNK
  5. LEVOTHROID [Concomitant]
     Dosage: 75 MG, QD
  6. ZOLOFT [Concomitant]
     Dosage: 100 MG, EVERY EVENING
  7. DELTASONE [Concomitant]
     Dosage: 10 MG, QD
  8. INSULIN GLARGINE [Concomitant]
     Dosage: UP TO 65 U QD
  9. FOSAMAX [Concomitant]
     Dosage: 70 MG, Q1WEEK
  10. ALTACE [Concomitant]
     Dosage: 2.5 MG, QD
  11. TENORMIN [Concomitant]
     Dosage: 50 MG, QD
  12. NOVOLOG [Concomitant]
     Dosage: UP TO 70 U TID AC
  13. ZANTAC [Concomitant]
     Dosage: 150 MG, BID
  14. NEURONTIN [Concomitant]
     Dosage: 300 MG, TID
  15. VYTORIN [Concomitant]
     Dosage: 10-40MG TABS I HS
  16. KLOR-CON [Concomitant]
     Dosage: 20 MEQ, UNK
  17. LASIX [Concomitant]
     Dosage: 60 MG QAM, 40 MG PM
  18. DESYREL [Concomitant]
     Dosage: 25 MG, UNK
  19. CARAFATE [Concomitant]
     Dosage: TABS 1 QID

REACTIONS (2)
  - Neoplasm malignant [Unknown]
  - Cancer surgery [Recovering/Resolving]
